FAERS Safety Report 12669525 (Version 1)
Quarter: 2016Q3

REPORT INFORMATION
  Report Type: Other
  Country: US (occurrence: US)
  Receive Date: 20160819
  Receipt Date: 20160819
  Transmission Date: 20161109
  Serious: Yes (Life-Threatening, Hospitalization)
  Sender: FDA-Public Use
  Company Number: US-CONCORDIA PHARMACEUTICALS INC.-CO-KX-US-2016-020

PATIENT
  Age: 50 Year
  Sex: Female

DRUGS (3)
  1. KAYEXALATE [Suspect]
     Active Substance: SODIUM POLYSTYRENE SULFONATE
     Indication: HYPERKALAEMIA
     Route: 048
  2. PREDNISONE. [Suspect]
     Active Substance: PREDNISONE
     Indication: IMMUNOSUPPRESSION
  3. CYCLOSPORINE. [Suspect]
     Active Substance: CYCLOSPORINE
     Indication: IMMUNOSUPPRESSION

REACTIONS (6)
  - Hypovolaemia [Recovering/Resolving]
  - Abdominal tenderness [Unknown]
  - Gastrointestinal necrosis [Unknown]
  - Large intestine perforation [Recovering/Resolving]
  - Acute kidney injury [Recovering/Resolving]
  - Abdominal pain [None]
